FAERS Safety Report 4651306-2 (Version None)
Quarter: 2005Q2

REPORT INFORMATION
  Report Type: 
  Country: None (occurrence: None)
  Receive Date: 20050425
  Receipt Date: 20050412
  Transmission Date: 20051028
  Serious: Yes (Hospitalization)
  Sender: FDA-Public Use
  Company Number: THYM-10414

PATIENT
  Age: 41 Year
  Sex: Female
  Weight: 60 kg

DRUGS (30)
  1. THYMOGLOBULIN [Suspect]
     Indication: BONE MARROW TRANSPLANT
     Dosage: 30 MG QD IV
     Route: 042
     Dates: start: 20050114, end: 20050114
  2. THYMOGLOBULIN [Suspect]
     Indication: PROPHYLAXIS AGAINST TRANSPLANT REJECTION
     Dosage: 30 MG QD IV
     Route: 042
     Dates: start: 20050114, end: 20050114
  3. THYMOGLOBULIN [Suspect]
     Indication: BONE MARROW TRANSPLANT
     Dosage: 120 MG QD IV
     Route: 042
     Dates: start: 20050115, end: 20050118
  4. THYMOGLOBULIN [Suspect]
     Indication: PROPHYLAXIS AGAINST TRANSPLANT REJECTION
     Dosage: 120 MG QD IV
     Route: 042
     Dates: start: 20050115, end: 20050118
  5. CYCLOSPORINE [Concomitant]
  6. CLONAZEPAM [Concomitant]
  7. FAMOTIDINE [Concomitant]
  8. HEPARIN [Concomitant]
  9. HYDROCORT [Concomitant]
  10. METHYLPREDNISOLONE [Concomitant]
  11. BENADRYL [Concomitant]
  12. PROCHLORPERAZINE [Concomitant]
  13. HYOSCINE HBR HYT [Concomitant]
  14. CODEINE [Concomitant]
  15. VANCOMYCIN [Concomitant]
  16. TYLENOL (CAPLET) [Concomitant]
  17. SEPTRA [Concomitant]
  18. MAXERAN [Concomitant]
  19. XANAX [Concomitant]
  20. TPN [Concomitant]
  21. MAGNESIUM SULFATE [Concomitant]
  22. ACYCLOVIR [Concomitant]
  23. ANUSOL [Concomitant]
  24. DIMENHYDRINATE [Concomitant]
  25. LORAZEPAM [Concomitant]
  26. MUCOSITIS MOUTHWASH [Concomitant]
  27. MORPHINE SULFATE [Concomitant]
  28. DEMEROL [Concomitant]
  29. POTASSIUM CHLORIDE [Concomitant]
  30. FLAGYL [Concomitant]

REACTIONS (9)
  - BLOOD LACTATE DEHYDROGENASE INCREASED [None]
  - DYSPNOEA [None]
  - ENGRAFTMENT SYNDROME [None]
  - FEBRILE NEUTROPENIA [None]
  - INFECTION [None]
  - LUNG INFILTRATION [None]
  - PERICARDIAL EFFUSION [None]
  - PLEURAL EFFUSION [None]
  - RESPIRATORY DISTRESS [None]
